FAERS Safety Report 24879612 (Version 1)
Quarter: 2025Q1

REPORT INFORMATION
  Report Type: Spontaneous
  Country: CN (occurrence: CN)
  Receive Date: 20250123
  Receipt Date: 20250123
  Transmission Date: 20250409
  Serious: Yes (Other)
  Sender: ALEXION PHARMACEUTICALS
  Company Number: CN-ASTRAZENECA-202501CHN018444CN

PATIENT
  Age: 59 Year

DRUGS (2)
  1. PULMICORT RESPULES [Suspect]
     Active Substance: BUDESONIDE
     Indication: Tachypnoea
     Dosage: 1 MILLIGRAM, BID
  2. TERBUTALINE [Suspect]
     Active Substance: TERBUTALINE
     Indication: Tachypnoea
     Dosage: 5 MILLIGRAM, BID

REACTIONS (1)
  - Dyspnoea [Recovering/Resolving]
